FAERS Safety Report 4706899-3 (Version None)
Quarter: 2005Q2

REPORT INFORMATION
  Report Type: 
  Country: None (occurrence: None)
  Receive Date: 20050630
  Receipt Date: 20050620
  Transmission Date: 20051028
  Serious: Yes (Life-Threatening)
  Sender: FDA-Public Use
  Company Number: MK200506-0359-1

PATIENT
  Age: 36 Year
  Sex: Female

DRUGS (2)
  1. TRAMADOL HYDROCHLORIDE TABS 50 MG [Suspect]
     Indication: PAIN
     Dosage: ONE DOSE
  2. ETORICOXIB [Concomitant]

REACTIONS (7)
  - DYSPHAGIA [None]
  - HALLUCINATION [None]
  - HYPERHIDROSIS [None]
  - PRURITUS GENERALISED [None]
  - SENSORY LOSS [None]
  - SWOLLEN TONGUE [None]
  - VERTIGO [None]
